FAERS Safety Report 8249417-8 (Version None)
Quarter: 2012Q1

REPORT INFORMATION
  Report Type: 
  Country: None (occurrence: None)
  Receive Date: 20120320
  Receipt Date: 20120305
  Transmission Date: 20120608
  Serious: Yes (Hospitalization)
  Sender: FDA-Public Use
  Company Number: AEUSA201200132

PATIENT
  Age: 70 Year
  Sex: Male
  Weight: 80.7403 kg

DRUGS (12)
  1. GAMUNEX [Suspect]
  2. GAMUNEX [Suspect]
     Indication: CHRONIC INFLAMMATORY DEMYELINATING POLYRADICULONEUROPATHY
     Dosage: 80 GM;QOW;IV
     Route: 042
     Dates: start: 20110602
  3. GAMUNEX [Suspect]
     Indication: CHRONIC INFLAMMATORY DEMYELINATING POLYRADICULONEUROPATHY
     Dosage: 80 GM;QOW;IV
     Route: 042
     Dates: start: 20110630
  4. GAMUNEX [Suspect]
     Indication: CHRONIC INFLAMMATORY DEMYELINATING POLYRADICULONEUROPATHY
     Dosage: 80 GM;QOW;IV
     Route: 042
     Dates: start: 20110718
  5. GAMUNEX [Suspect]
     Indication: CHRONIC INFLAMMATORY DEMYELINATING POLYRADICULONEUROPATHY
     Dosage: 80 GM;QOW;IV
     Route: 042
     Dates: start: 20110616
  6. PREDNISONE TAB [Concomitant]
  7. PAXIL [Concomitant]
  8. BENADRYL [Concomitant]
  9. GAMUNEX [Suspect]
  10. GAMUNEX [Suspect]
  11. MULTI-VITAMINS [Concomitant]
  12. TYLENOL (CAPLET) [Concomitant]

REACTIONS (2)
  - CORONARY ARTERY OCCLUSION [None]
  - ACUTE MYOCARDIAL INFARCTION [None]
